FAERS Safety Report 14242682 (Version 5)
Quarter: 2018Q1

REPORT INFORMATION
  Report Type: Spontaneous
  Country: NL (occurrence: NL)
  Receive Date: 20171201
  Receipt Date: 20180303
  Transmission Date: 20180508
  Serious: Yes (Other)
  Sender: FDA-Public Use
  Company Number: NL-009507513-1711NLD009260

PATIENT
  Age: 56 Year
  Sex: Male
  Weight: 78 kg

DRUGS (3)
  1. LOSARTAN POTASSIUM. [Suspect]
     Active Substance: LOSARTAN POTASSIUM
     Indication: HYPERTENSION
     Dosage: 50 MG, DAILY
     Route: 048
     Dates: start: 20140501, end: 20161201
  2. BUDESONIDE. [Concomitant]
     Active Substance: BUDESONIDE
     Indication: PRODUCT USED FOR UNKNOWN INDICATION
     Dosage: UNK
     Route: 065
     Dates: start: 2016, end: 201701
  3. LISINOPRIL. [Suspect]
     Active Substance: LISINOPRIL
     Indication: HYPERTENSION
     Dosage: UNK
     Route: 065
     Dates: start: 201404, end: 201405

REACTIONS (3)
  - Coeliac disease [Recovered/Resolved]
  - Gastrointestinal disorder [Recovered/Resolved]
  - Cough [Unknown]

NARRATIVE: CASE EVENT DATE: 201405
